FAERS Safety Report 21505140 (Version 1)
Quarter: 2022Q4

REPORT INFORMATION
  Report Type: Spontaneous
  Country: US (occurrence: None)
  Receive Date: 20221025
  Receipt Date: 20221025
  Transmission Date: 20230113
  Serious: Yes (Hospitalization)
  Sender: FDA-Public Use
  Company Number: None

PATIENT
  Age: 63 Year
  Sex: Female

DRUGS (2)
  1. TACROLIMUS [Suspect]
     Active Substance: TACROLIMUS
     Indication: Liver transplant
     Dosage: TAKE 4 CAPSULES (4 MG TOTAL) BY MOUTH EVERY 12 (TWELVE) HOURS. TAKE AT 9 AM AND 9 PM. ON CLINIC/DAYS
     Route: 048
     Dates: start: 20220923
  2. MYCOPHENOLATE [Concomitant]

REACTIONS (3)
  - Injection site infection [None]
  - Drug intolerance [None]
  - Therapy cessation [None]

NARRATIVE: CASE EVENT DATE: 20220923
